FAERS Safety Report 20978778 (Version 3)
Quarter: 2022Q3

REPORT INFORMATION
  Report Type: Spontaneous
  Country: FR (occurrence: FR)
  Receive Date: 20220619
  Receipt Date: 20220714
  Transmission Date: 20221026
  Serious: Yes (Hospitalization)
  Sender: FDA-Public Use
  Company Number: None

PATIENT
  Age: 86 Year
  Sex: Female

DRUGS (10)
  1. ALLOPURINOL [Suspect]
     Active Substance: ALLOPURINOL
     Indication: Product used for unknown indication
     Dosage: UNIT DOSE : 100 MG , FREQUENCY TIME : 1 DAYS ,THERAPY START DATE : ASKU
     Route: 048
     Dates: end: 202202
  2. AMLODIPINE [Suspect]
     Active Substance: AMLODIPINE BESYLATE
     Indication: Product used for unknown indication
     Dosage: UNIT DOSE : 5 MG , FREQUENCY TIME : 1 DAYS , DURATION : 1 YEARS
     Route: 048
     Dates: start: 20200910, end: 202202
  3. BISOPROLOL FUMARATE [Suspect]
     Active Substance: BISOPROLOL FUMARATE
     Indication: Myocardial ischaemia
     Dosage: BISOPROLOL (FUMARATE DE) , UNIT DOSE : 2.5 MG , FREQUENCY TIME : 1 DAYS , THERAPY START DATE : ASKU
     Route: 048
     Dates: end: 20220301
  4. LANSOPRAZOLE [Suspect]
     Active Substance: LANSOPRAZOLE
     Indication: Prophylaxis
     Dosage: UNIT DOSE : 30 MG , FREQUENCY TIME : 1 DAYS
     Route: 048
     Dates: start: 202102
  5. ZOPICLONE [Suspect]
     Active Substance: ZOPICLONE
     Indication: Sleep disorder
     Dosage: UNIT DOSE : 3.75 MG , THERAPY START DATE : ASKU FREQUENCY TIME : 1 DAYS
     Route: 048
     Dates: end: 20220302
  6. POTASSIUM CHLORIDE [Suspect]
     Active Substance: POTASSIUM CHLORIDE
     Indication: Hypokalaemia
     Dosage: THERAPY START DATE : ASKU
     Route: 048
     Dates: end: 20220301
  7. ENTRESTO [Suspect]
     Active Substance: SACUBITRIL\VALSARTAN
     Indication: Myocardial ischaemia
     Dosage: 49 MG/51 MG , UNIT DOSE : 2 DF , FREQUENCY TIME : 1 DAYS , DURATION : 519 DAYS
     Route: 048
     Dates: start: 20200910, end: 20220211
  8. LEVEMIR [Suspect]
     Active Substance: INSULIN DETEMIR
     Indication: Insulin-requiring type 2 diabetes mellitus
     Dosage: THERAPY START DATE : ASKU
     Route: 058
     Dates: end: 202202
  9. ELIQUIS [Suspect]
     Active Substance: APIXABAN
     Indication: Thrombosis prophylaxis
     Dosage: FORM STRENGTH : 2.5 MG , UNIT DOSE : 5 MG , FREQUENCY TIME : 1 DAYS ,THERAPY START DATE : ASKU
     Route: 048
     Dates: end: 20220222
  10. FUROSEMIDE [Suspect]
     Active Substance: FUROSEMIDE
     Indication: Hypertension
     Dosage: UNIT DOSE : 290 MG , FREQUENCY TIME : 1 DAYS , THERAPY START DATE : ASKU
     Route: 048

REACTIONS (1)
  - Colitis microscopic [Not Recovered/Not Resolved]

NARRATIVE: CASE EVENT DATE: 20211101
